FAERS Safety Report 4664844-3 (Version None)
Quarter: 2005Q2

REPORT INFORMATION
  Report Type: 
  Country: None (occurrence: None)
  Receive Date: 20050517
  Receipt Date: 20050504
  Transmission Date: 20051028
  Serious: Yes (Death)
  Sender: FDA-Public Use
  Company Number: HQWYE895414MAY04

PATIENT
  Age: 67 Year
  Sex: Male

DRUGS (5)
  1. PANTOPRAZOLE SODIUM [Suspect]
     Indication: PROPHYLAXIS
     Dosage: 40 MG 1X  PER 1 DAY INTRAVENOUS
     Route: 042
     Dates: start: 20040123, end: 20040124
  2. TIMENTIN [Suspect]
     Dosage: 5.2 G 3X PER 1 DAY INTRAVENOUS
     Route: 042
     Dates: start: 20040123, end: 20040124
  3. VOLTAREN [Suspect]
     Indication: ANALGESIC EFFECT
     Dosage: 75 MG 2X PER DAY IM
     Route: 030
     Dates: start: 20040123, end: 20040124
  4. BUPIVACAINE [Concomitant]
  5. LONARID (AMOBARBITAL/CAFFEINE/CODEINE PHOSPHATE/OCTIBENZONIUM BROMIDE/ [Concomitant]

REACTIONS (1)
  - HEPATORENAL FAILURE [None]
